FAERS Safety Report 13400723 (Version 19)
Quarter: 2018Q2

REPORT INFORMATION
  Report Type: Report from Study
  Country: CA (occurrence: CA)
  Receive Date: 20170404
  Receipt Date: 20180607
  Transmission Date: 20180711
  Serious: Yes (Hospitalization, Other)
  Sender: FDA-Public Use
  Company Number: PHHY2015CA147884

PATIENT
  Age: 68 Year
  Sex: Male

DRUGS (5)
  1. SANDOSTATIN [Suspect]
     Active Substance: OCTREOTIDE ACETATE
     Indication: ADENOCARCINOMA
     Dosage: UNK UNK, BID
     Route: 058
     Dates: start: 20150916, end: 2015
  2. ATIVAN [Concomitant]
     Active Substance: LORAZEPAM
     Indication: PRODUCT USED FOR UNKNOWN INDICATION
     Dosage: UNK UNK, QD
     Route: 048
  3. PANITUMUMAB [Concomitant]
     Active Substance: PANITUMUMAB
     Indication: PRODUCT USED FOR UNKNOWN INDICATION
     Dosage: UNK UNK, BIW
     Route: 065
  4. SANDOSTATIN LAR DEPOT [Suspect]
     Active Substance: OCTREOTIDE ACETATE
     Indication: ADENOCARCINOMA
     Dosage: 20 MG, QMO (EVERY 4 WEEKS)
     Route: 030
     Dates: start: 20151009
  5. FRAGMIN [Concomitant]
     Active Substance: DALTEPARIN SODIUM
     Indication: PRODUCT USED FOR UNKNOWN INDICATION
     Route: 005

REACTIONS (28)
  - Rectal injury [Unknown]
  - Proctalgia [Unknown]
  - Ocular hyperaemia [Unknown]
  - Mucosal erosion [Unknown]
  - Acne [Unknown]
  - Pulmonary embolism [Unknown]
  - Pneumonia [Unknown]
  - Malignant neoplasm progression [Unknown]
  - Blood pressure diastolic decreased [Unknown]
  - Mouth ulceration [Unknown]
  - Otorrhoea [Unknown]
  - Paronychia [Recovered/Resolved]
  - Diarrhoea [Unknown]
  - Rectal haemorrhage [Unknown]
  - Blood pressure systolic increased [Unknown]
  - Tooth infection [Unknown]
  - Body temperature decreased [Unknown]
  - Chromaturia [Unknown]
  - Product use in unapproved indication [Unknown]
  - Dyspnoea [Recovering/Resolving]
  - Anorectal discomfort [Unknown]
  - Rash [Unknown]
  - Respiratory disorder [Unknown]
  - Pleural effusion [Unknown]
  - Lung infection [Recovering/Resolving]
  - Back pain [Recovering/Resolving]
  - Influenza [Unknown]
  - Vomiting [Recovering/Resolving]

NARRATIVE: CASE EVENT DATE: 20151106
